FAERS Safety Report 6349044-3 (Version None)
Quarter: 2009Q3

REPORT INFORMATION
  Report Type: 
  Country: None (occurrence: None)
  Receive Date: 20090908
  Receipt Date: 20090829
  Transmission Date: 20100115
  Serious: Yes (Hospitalization)
  Sender: FDA-Public Use
  Company Number: 2009SP022875

PATIENT
  Age: 62 Year
  Sex: Male

DRUGS (4)
  1. INTEGRILIN             (APITIFIBATIDE) [Suspect]
     Indication: SURGERY
     Dates: start: 20090828, end: 20090828
  2. ASPIRIN [Suspect]
     Indication: SURGERY
     Dates: start: 20090829
  3. PLAVIX [Suspect]
     Indication: SURGERY
     Dates: start: 20090829
  4. LOVENOX [Suspect]
     Indication: SURGERY
     Dates: start: 20090829

REACTIONS (2)
  - CEREBRAL HAEMORRHAGE [None]
  - CEREBRAL THROMBOSIS [None]
